FAERS Safety Report 9700465 (Version 2)
Quarter: 2013Q4

REPORT INFORMATION
  Report Type: Spontaneous
  Country: US (occurrence: US)
  Receive Date: 20131121
  Receipt Date: 20131129
  Transmission Date: 20140711
  Serious: No
  Sender: FDA-Public Use
  Company Number: US-PFIZER INC-2013328871

PATIENT
  Age: 24 Year
  Sex: Female
  Weight: 58.96 kg

DRUGS (1)
  1. ADVIL [Suspect]
     Indication: DYSMENORRHOEA
     Dosage: TWO TABLETS OF 200MG, ONCE
     Route: 048
     Dates: start: 20131116, end: 20131116

REACTIONS (8)
  - Hypersensitivity [Unknown]
  - Dry mouth [Unknown]
  - Dry throat [Unknown]
  - Throat tightness [Unknown]
  - Palpitations [Unknown]
  - Dizziness [Unknown]
  - Muscle spasms [Unknown]
  - Blood iron decreased [Unknown]
